FAERS Safety Report 4932385-1 (Version None)
Quarter: 2006Q1

REPORT INFORMATION
  Report Type: 
  Country: None (occurrence: None)
  Receive Date: 20060228
  Receipt Date: 20060131
  Transmission Date: 20060701
  Serious: Yes (Hospitalization, Disabling)
  Sender: FDA-Public Use
  Company Number: A03200503939

PATIENT
  Age: 70 Year
  Sex: Male
  Weight: 78.0187 kg

DRUGS (2)
  1. UROXATRAL [Suspect]
     Indication: BENIGN PROSTATIC HYPERPLASIA
     Dosage: 10 MG OD - ORAL
     Route: 048
     Dates: start: 20051108, end: 20051109
  2. UROXATRAL [Suspect]
     Indication: NOCTURIA
     Dosage: 10 MG OD - ORAL
     Route: 048
     Dates: start: 20051108, end: 20051109

REACTIONS (1)
  - CEREBROVASCULAR ACCIDENT [None]
